FAERS Safety Report 23134696 (Version 1)
Quarter: 2023Q4

REPORT INFORMATION
  Report Type: Spontaneous
  Country: US (occurrence: US)
  Receive Date: 20231101
  Receipt Date: 20231101
  Transmission Date: 20240109
  Serious: No
  Sender: FDA-Public Use
  Company Number: US-MYLANLABS-2023M1114066

PATIENT
  Sex: Male
  Weight: 45.36 kg

DRUGS (7)
  1. ZOLOFT [Suspect]
     Active Substance: SERTRALINE HYDROCHLORIDE
     Indication: Anxiety
     Dosage: 25 MILLIGRAM, QD (ONCE AT NIGHT)
     Route: 048
     Dates: start: 202107
  2. ZOLOFT [Suspect]
     Active Substance: SERTRALINE HYDROCHLORIDE
     Dosage: 50 MILLIGRAM, QD (ONCE AT NIGHT)
     Route: 048
     Dates: start: 202305
  3. ZOLOFT [Suspect]
     Active Substance: SERTRALINE HYDROCHLORIDE
     Dosage: 100 MILLIGRAM, QD (ONCE AT NIGHT)
     Route: 048
     Dates: start: 202307
  4. ZOLOFT [Suspect]
     Active Substance: SERTRALINE HYDROCHLORIDE
     Dosage: 200 MILLIGRAM, QD (ONCE AT NIGHT)
     Route: 048
     Dates: start: 202309
  5. ZOLOFT [Suspect]
     Active Substance: SERTRALINE HYDROCHLORIDE
     Dosage: 150 MILLIGRAM, QD (ONCE AT NIGHT)
     Route: 048
     Dates: start: 202310
  6. ZOLOFT [Suspect]
     Active Substance: SERTRALINE HYDROCHLORIDE
     Dosage: 150 MILLIGRAM, QD (ONCE AT NIGHT)
     Route: 048
     Dates: start: 20231016
  7. ZOLOFT [Suspect]
     Active Substance: SERTRALINE HYDROCHLORIDE
     Dosage: 125 MILLIGRAM, QD (ONCE AT NIGHT)
     Route: 048
     Dates: start: 20231019

REACTIONS (7)
  - Logorrhoea [Recovered/Resolved]
  - Mood altered [Recovered/Resolved]
  - Mania [Recovered/Resolved]
  - Aggression [Recovered/Resolved]
  - Anger [Recovered/Resolved]
  - Insomnia [Recovered/Resolved]
  - Agitation [Recovered/Resolved]
